FAERS Safety Report 14034145 (Version 2)
Quarter: 2017Q4

REPORT INFORMATION
  Report Type: Spontaneous
  Country: CN (occurrence: CN)
  Receive Date: 20171003
  Receipt Date: 20171010
  Transmission Date: 20180321
  Serious: Yes (Other)
  Sender: FDA-Public Use
  Company Number: CN-009507513-1710CHN000059

PATIENT
  Age: 87 Year
  Sex: Male
  Weight: 45 kg

DRUGS (3)
  1. SODIUM CHLORIDE. [Concomitant]
     Active Substance: SODIUM CHLORIDE
     Dosage: 200 ML, BID
     Route: 041
     Dates: start: 20170805, end: 20170806
  2. TIENAM [Suspect]
     Active Substance: CILASTATIN SODIUM\IMIPENEM
     Indication: PNEUMONITIS
     Dosage: 2 G, BID (Q12H)
     Route: 041
     Dates: start: 20170805, end: 20170805
  3. ETIMCIN (AZITHROMYCIN) [Concomitant]
     Dosage: 0.15 G, QD

REACTIONS (2)
  - Epilepsy [Recovering/Resolving]
  - Arrhythmia [Recovering/Resolving]

NARRATIVE: CASE EVENT DATE: 20170805
